FAERS Safety Report 15087489 (Version 1)
Quarter: 2018Q2

REPORT INFORMATION
  Report Type: Spontaneous
  Country: US (occurrence: US)
  Receive Date: 20180628
  Receipt Date: 20180628
  Transmission Date: 20180711
  Serious: Yes (Other)
  Sender: FDA-Public Use
  Company Number: US-ABBVIE-18K-163-2397882-00

PATIENT
  Age: 64 Year
  Sex: Female
  Weight: 60.84 kg

DRUGS (5)
  1. POMALYST [Suspect]
     Active Substance: POMALIDOMIDE
     Indication: PRODUCT USED FOR UNKNOWN INDICATION
     Route: 065
  2. DEXAMETHASONE. [Suspect]
     Active Substance: DEXAMETHASONE
     Indication: PRODUCT USED FOR UNKNOWN INDICATION
     Route: 065
  3. DARATUMUMAB [Suspect]
     Active Substance: DARATUMUMAB
     Indication: PRODUCT USED FOR UNKNOWN INDICATION
     Route: 065
  4. VENCLEXTA [Suspect]
     Active Substance: VENETOCLAX
     Route: 048
     Dates: start: 20180305, end: 20180308
  5. VENCLEXTA [Suspect]
     Active Substance: VENETOCLAX
     Indication: PLASMA CELL MYELOMA
     Route: 048
     Dates: start: 20180205, end: 2018

REACTIONS (13)
  - Memory impairment [Recovered/Resolved]
  - Apparent death [Unknown]
  - Rib fracture [Unknown]
  - Off label use [Unknown]
  - Osteolysis [Unknown]
  - Plasma cell myeloma [Unknown]
  - Loss of personal independence in daily activities [Recovered/Resolved]
  - Clavicle fracture [Unknown]
  - Dyspnoea [Recovered/Resolved]
  - Plasmacytoma [Not Recovered/Not Resolved]
  - Gait disturbance [Recovered/Resolved]
  - Pain [Unknown]
  - Drug resistance [Unknown]

NARRATIVE: CASE EVENT DATE: 2018
